FAERS Safety Report 15394165 (Version 1)
Quarter: 2018Q3

REPORT INFORMATION
  Report Type: Report from Study
  Country: IT (occurrence: IT)
  Receive Date: 20180918
  Receipt Date: 20180918
  Transmission Date: 20181010
  Serious: Yes (Life-Threatening)
  Sender: FDA-Public Use
  Company Number: IT-TEVA-2018-IT-955087

PATIENT
  Age: 91 Year
  Sex: Female

DRUGS (5)
  1. PEPTAZOL 20 MG COMPRESSE GASTRORESISTENTI [Concomitant]
     Route: 065
  2. OLMESARTAN MEDOXOMIL. [Concomitant]
     Active Substance: OLMESARTAN MEDOXOMIL
     Route: 048
  3. LIXIANA 60 MG FILM?COATED TABLETS [Concomitant]
     Route: 048
  4. SOTALOL HYDROCHLORIDE. [Suspect]
     Active Substance: SOTALOL HYDROCHLORIDE
     Dosage: 80 MILLIGRAM DAILY;
     Route: 048
  5. FLECAINIDE ACETATE. [Suspect]
     Active Substance: FLECAINIDE ACETATE
     Dosage: 300 MILLIGRAM DAILY;
     Route: 048
     Dates: start: 20180703, end: 20180705

REACTIONS (10)
  - Presyncope [Recovered/Resolved]
  - Livedo reticularis [Recovered/Resolved]
  - Bradycardia [Recovered/Resolved]
  - Loss of consciousness [Recovered/Resolved]
  - Malaise [Recovered/Resolved]
  - Bradypnoea [Recovered/Resolved]
  - Overdose [Recovered/Resolved]
  - Sopor [Recovered/Resolved]
  - Hypotension [Recovered/Resolved]
  - Asthenia [Recovered/Resolved]

NARRATIVE: CASE EVENT DATE: 20180703
